FAERS Safety Report 12550894 (Version 1)
Quarter: 2016Q3

REPORT INFORMATION
  Report Type: Spontaneous
  Country: BR (occurrence: BR)
  Receive Date: 20160712
  Receipt Date: 20160712
  Transmission Date: 20161109
  Serious: Yes (Death, Hospitalization, Other)
  Sender: FDA-Public Use
  Company Number: BR-BRISTOL-MYERS SQUIBB COMPANY-BMS-2016-056100

PATIENT
  Age: 54 Year
  Sex: Male

DRUGS (2)
  1. DACLATASVIR DIHYDROCHLORIDE [Suspect]
     Active Substance: DACLATASVIR DIHYDROCHLORIDE
     Indication: HEPATITIS C
     Dosage: UNK
     Route: 065
     Dates: start: 20160406, end: 20160427
  2. SOFOSBUVIR [Suspect]
     Active Substance: SOFOSBUVIR
     Indication: HEPATITIS C
     Dosage: UNK
     Route: 065
     Dates: start: 20160406, end: 20160427

REACTIONS (4)
  - Liver transplant [Unknown]
  - Non-Hodgkin^s lymphoma [Fatal]
  - Hepatic cirrhosis [Unknown]
  - Multiple organ dysfunction syndrome [Fatal]

NARRATIVE: CASE EVENT DATE: 20160427
